FAERS Safety Report 21395803 (Version 1)
Quarter: 2022Q3

REPORT INFORMATION
  Report Type: Spontaneous
  Country: US (occurrence: US)
  Receive Date: 20220930
  Receipt Date: 20220930
  Transmission Date: 20221026
  Serious: No
  Sender: FDA-Public Use
  Company Number: US-AMGEN-USASP2022167402

PATIENT
  Age: 82 Year
  Sex: Female

DRUGS (1)
  1. REPATHA [Suspect]
     Active Substance: EVOLOCUMAB
     Indication: Blood cholesterol increased
     Dosage: UNK UNK, Q2WK
     Route: 065
     Dates: start: 202208

REACTIONS (11)
  - Ear congestion [Unknown]
  - Heart rate irregular [Unknown]
  - Hypoaesthesia [Unknown]
  - Nervousness [Unknown]
  - Sinus congestion [Unknown]
  - Tinnitus [Unknown]
  - Fatigue [Unknown]
  - Muscle spasms [Unknown]
  - Headache [Unknown]
  - Back pain [Unknown]
  - Nausea [Unknown]

NARRATIVE: CASE EVENT DATE: 20220101
